FAERS Safety Report 11596013 (Version 2)
Quarter: 2015Q4

REPORT INFORMATION
  Report Type: Spontaneous
  Country: NL (occurrence: NL)
  Receive Date: 20151006
  Receipt Date: 20151202
  Transmission Date: 20160304
  Serious: Yes (Death)
  Sender: FDA-Public Use
  Company Number: NL-TOLMAR, INC.-2015NL008863

PATIENT
  Sex: Male

DRUGS (6)
  1. ELIGARD [Suspect]
     Active Substance: LEUPROLIDE ACETATE
     Dosage: 22.5 MG, ONCE IN EVERY 3 MONTHS
     Route: 058
     Dates: start: 20150404
  2. PANTOPRAZOLE [Concomitant]
     Active Substance: PANTOPRAZOLE SODIUM
     Route: 065
  3. ACETYLSALICYLIC ACID [Concomitant]
     Active Substance: ASPIRIN
     Route: 065
  4. LOSARTAN + HIDROCLOROTIAZIDA       /01625701/ [Concomitant]
     Route: 065
  5. ELIGARD [Suspect]
     Active Substance: LEUPROLIDE ACETATE
     Dosage: 22.5 MG, ONCE IN EVERY 3 MONTHS
     Route: 058
     Dates: start: 20150728
  6. ELIGARD [Suspect]
     Active Substance: LEUPROLIDE ACETATE
     Indication: PROSTATE CANCER
     Dosage: 22.5 MG, ONCE IN EVERY 3 MONTHS
     Route: 058
     Dates: start: 20150130

REACTIONS (1)
  - Myocardial infarction [Fatal]
